FAERS Safety Report 8509311-1 (Version None)
Quarter: 2012Q3

REPORT INFORMATION
  Report Type: 
  Country: None (occurrence: None)
  Receive Date: 20120713
  Receipt Date: 20120702
  Transmission Date: 20120928
  Serious: Yes (Hospitalization, Other)
  Sender: FDA-Public Use
  Company Number: AU-ROCHE-1085136

PATIENT

DRUGS (4)
  1. RIBAVIRIN [Suspect]
     Indication: PRODUCT USED FOR UNKNOWN INDICATION
     Dates: start: 20120222
  2. RIBAVIRIN [Suspect]
     Dosage: ON AN UNSPECIFIED DATE DOSE WAS REDUCED DURING TREATMENT
  3. PEGASYS [Suspect]
     Dosage: ON AN UNSPECIFIED DATE DOSE WAS REDUCED DURING TREATMENT
  4. PEGASYS [Suspect]
     Indication: PRODUCT USED FOR UNKNOWN INDICATION
     Dates: start: 20120222

REACTIONS (2)
  - CEREBRAL HAEMORRHAGE [None]
  - PNEUMONIA [None]
